FAERS Safety Report 6165675-8 (Version None)
Quarter: 2009Q2

REPORT INFORMATION
  Report Type: 
  Country: None (occurrence: None)
  Receive Date: 20090423
  Receipt Date: 20090415
  Transmission Date: 20091009
  Serious: Yes (Life-Threatening)
  Sender: FDA-Public Use
  Company Number: JP-SANOFI-SYNTHELABO-A01200903709

PATIENT
  Sex: Male
  Weight: 56 kg

DRUGS (10)
  1. FLOMOX [Concomitant]
     Indication: INFECTION PROPHYLAXIS
     Route: 048
     Dates: start: 20090324, end: 20090325
  2. NOVAMIN [Concomitant]
     Indication: VOMITING
     Route: 048
     Dates: start: 20090311, end: 20090325
  3. OMEPRAZOLE [Concomitant]
     Indication: GASTRITIS PROPHYLAXIS
     Dosage: 10 MG
     Route: 048
     Dates: start: 20090311, end: 20090325
  4. LOXONIN [Concomitant]
     Indication: PAIN
     Route: 048
     Dates: start: 20090311, end: 20090325
  5. DEXART [Concomitant]
     Dates: start: 20080916, end: 20090218
  6. KYTRIL [Concomitant]
     Dates: start: 20080916, end: 20090218
  7. LEVOFOLINATE [Suspect]
     Indication: COLON CANCER
     Dosage: 325 MG
     Route: 042
     Dates: start: 20090218, end: 20090218
  8. AVASTIN [Concomitant]
     Indication: COLON CANCER
     Dosage: 5 MG/KG
     Route: 042
     Dates: start: 20090218, end: 20090218
  9. ELPLAT [Suspect]
     Indication: COLON CANCER
     Dosage: 140 MG
     Route: 042
     Dates: start: 20090218, end: 20090218
  10. FLUOROURACIL [Concomitant]
     Indication: COLON CANCER
     Dosage: 600MG/BODY(400MG/M2)IN BOLUS THEN 4500MG/BODY/D1-2 (2400MG/M2/D1-2)
     Route: 042
     Dates: start: 20090218, end: 20090220

REACTIONS (1)
  - GASTROINTESTINAL PERFORATION [None]
